FAERS Safety Report 7335579-3 (Version None)
Quarter: 2011Q1

REPORT INFORMATION
  Report Type: 
  Country: None (occurrence: None)
  Receive Date: 20110307
  Receipt Date: 20110223
  Transmission Date: 20110831
  Serious: Yes (Other)
  Sender: FDA-Public Use
  Company Number: US-MYLANLABS-2011S1003648

PATIENT
  Age: 47 Year
  Sex: Female
  Weight: 63.5 kg

DRUGS (4)
  1. FENTANYL-100 [Suspect]
     Dosage: CHANGED Q72H.
     Route: 062
     Dates: start: 20110218
  2. METHADONE [Concomitant]
     Route: 048
  3. FENTANYL-100 [Suspect]
     Indication: CANCER PAIN
     Dosage: CHANGED Q72H.
     Route: 062
     Dates: start: 20110128, end: 20110213
  4. DULCOLAX [Concomitant]
     Route: 048

REACTIONS (7)
  - FEELING HOT [None]
  - INSOMNIA [None]
  - CONSTIPATION [None]
  - CONFUSIONAL STATE [None]
  - DECREASED APPETITE [None]
  - OVERDOSE [None]
  - TACHYPNOEA [None]
